FAERS Safety Report 4722894-2 (Version None)
Quarter: 2005Q3

REPORT INFORMATION
  Report Type: 
  Country: None (occurrence: None)
  Receive Date: 20050722
  Receipt Date: 20050603
  Transmission Date: 20060218
  Serious: Yes (Death)
  Sender: FDA-Public Use
  Company Number: ES-BOEHRINGER INGELHEIM PHARMACEUTICALS, INC.-2005-ES-00167ES

PATIENT
  Sex: Male
  Weight: 73 kg

DRUGS (1)
  1. TIPRANAVIR + RITONAVIR CO-ADMIN [Suspect]
     Indication: HIV INFECTION
     Dosage: TIPRANAVIR 1000MG +  RITONAVIR 400MG
     Route: 048
     Dates: start: 20050411, end: 20050506

REACTIONS (2)
  - LYMPHOMA [None]
  - PNEUMONIA [None]
